FAERS Safety Report 5262784-2 (Version None)
Quarter: 2007Q1

REPORT INFORMATION
  Report Type: 
  Country: None (occurrence: None)
  Receive Date: 20070312
  Receipt Date: 20070305
  Transmission Date: 20070707
  Serious: Yes (Life-Threatening)
  Sender: FDA-Public Use
  Company Number: JP-JPN-A200604786

PATIENT
  Age: 26 Year
  Sex: Female
  Weight: 45 kg

DRUGS (8)
  1. ZOVIRAX [Suspect]
     Dosage: 250MG THREE TIMES PER DAY
     Route: 042
     Dates: start: 20061031, end: 20061105
  2. LOXONIN [Concomitant]
     Route: 048
  3. GATIFLOXACIN [Concomitant]
     Route: 048
  4. PELEX [Concomitant]
     Route: 048
  5. LYSOZYME HYDROCHLORIDE [Concomitant]
     Route: 048
  6. UNKNOWN COLD MEDICATION [Concomitant]
  7. FLUID REPLACEMENT [Concomitant]
  8. INTUBATION [Concomitant]

REACTIONS (26)
  - BACTERIAL INFECTION [None]
  - BLOOD CREATINE PHOSPHOKINASE INCREASED [None]
  - BLOOD PRESSURE DECREASED [None]
  - CARDIAC FAILURE ACUTE [None]
  - CARDIAC FAILURE CONGESTIVE [None]
  - DISSEMINATED INTRAVASCULAR COAGULATION [None]
  - ENDOTOXIC SHOCK [None]
  - EPISTAXIS [None]
  - HEADACHE [None]
  - HEPATIC FUNCTION ABNORMAL [None]
  - HEPATITIS FULMINANT [None]
  - MELAENA [None]
  - MOUTH HAEMORRHAGE [None]
  - MULTI-ORGAN FAILURE [None]
  - MUSCLE ATROPHY [None]
  - NAUSEA [None]
  - NOCTURNAL DYSPNOEA [None]
  - PAINFUL RESPIRATION [None]
  - PULMONARY OEDEMA [None]
  - PYREXIA [None]
  - RENAL FAILURE ACUTE [None]
  - RENAL IMPAIRMENT [None]
  - SEPTIC SHOCK [None]
  - SYSTEMIC INFLAMMATORY RESPONSE SYNDROME [None]
  - TACHYCARDIA [None]
  - VISION BLURRED [None]
